FAERS Safety Report 9594248 (Version 1)
Quarter: 2013Q3

REPORT INFORMATION
  Report Type: Spontaneous
  Country: US (occurrence: None)
  Receive Date: 20130923
  Receipt Date: 20130923
  Transmission Date: 20140515
  Serious: Yes (Hospitalization)
  Sender: FDA-Public Use
  Company Number: 2013STPI000274

PATIENT
  Age: 73 Year
  Sex: Female
  Weight: 50.8 kg

DRUGS (14)
  1. MATULANE [Suspect]
     Indication: NON-HODGKIN^S LYMPHOMA
     Dates: start: 20130625
  2. COZAAR (LOSARTAN POTASSIUM) (50 MILLIGRAM, TABLETS) (LOSARTAN POTASSIUM) [Concomitant]
  3. SOMA (CARISOPRODOL) [Concomitant]
  4. LIPITOR (ATORVASTATIN CALCIUM) [Concomitant]
  5. VICODIN (HYDROCODONE BITARATE, PARACETAMOL) [Concomitant]
  6. IMDUR (ISOSORBIDE MONONITRATE) [Concomitant]
  7. PROCHLORPENZINE (PROCHLORPERAZINE) [Concomitant]
  8. WARFARIN SODIUM (WARFARIN SODIUM) [Concomitant]
  9. ATIVAN (LORAZEPAM) [Concomitant]
  10. PLAVIX (CLOPIDOGREL BISULFATE) [Concomitant]
  11. ASPIRIN (E.C.) (ACETYLSALICYLIC ACID) [Concomitant]
  12. COLACE [Concomitant]
  13. VITAMIN D3 (COLECALCIFEROL) [Concomitant]
  14. MELATONIN (MELATONIN) [Concomitant]

REACTIONS (1)
  - Platelet count decreased [None]
